FAERS Safety Report 6658793-9 (Version None)
Quarter: 2010Q1

REPORT INFORMATION
  Report Type: 
  Country: None (occurrence: None)
  Receive Date: 20100330
  Receipt Date: 20100324
  Transmission Date: 20100710
  Serious: Yes (Hospitalization)
  Sender: FDA-Public Use
  Company Number: PHHY2010JP18081

PATIENT
  Age: 77 Year
  Sex: Female

DRUGS (1)
  1. METOPIRONE [Suspect]
     Indication: CUSHING'S SYNDROME
     Route: 048

REACTIONS (3)
  - BLOOD PRESSURE DECREASED [None]
  - DECREASED APPETITE [None]
  - NAUSEA [None]
